FAERS Safety Report 15427474 (Version 1)
Quarter: 2018Q3

REPORT INFORMATION
  Report Type: Report from Study
  Country: PR (occurrence: PR)
  Receive Date: 20180925
  Receipt Date: 20180925
  Transmission Date: 20181010
  Serious: Yes (Other)
  Sender: FDA-Public Use
  Company Number: PR-SHIRE-PR201835926

PATIENT

DRUGS (1)
  1. C1 INHIBITOR (HUMAN) [Suspect]
     Active Substance: HUMAN C1-ESTERASE INHIBITOR
     Indication: PRODUCT USED FOR UNKNOWN INDICATION
     Route: 042

REACTIONS (4)
  - Laryngeal oedema [Unknown]
  - Insurance issue [Unknown]
  - Inappropriate schedule of drug administration [Unknown]
  - Hereditary angioedema [Unknown]
